FAERS Safety Report 8716464 (Version 3)
Quarter: 2013Q4

REPORT INFORMATION
  Report Type: Spontaneous
  Country: US (occurrence: US)
  Receive Date: 20120810
  Receipt Date: 20131101
  Transmission Date: 20140711
  Serious: Yes (Other)
  Sender: FDA-Public Use
  Company Number: US-009507513-1208USA001903

PATIENT
  Sex: 0

DRUGS (3)
  1. JANUVIA [Suspect]
     Indication: TYPE 2 DIABETES MELLITUS
     Dosage: 100 MG, BID
     Route: 048
  2. JANUVIA [Suspect]
     Dosage: 50 MG, QD
     Route: 048
  3. METFORMIN [Concomitant]

REACTIONS (2)
  - Renal failure [Unknown]
  - Overdose [Unknown]
